FAERS Safety Report 23998492 (Version 1)
Quarter: 2024Q2

REPORT INFORMATION
  Report Type: Spontaneous
  Country: US (occurrence: None)
  Receive Date: 20240620
  Receipt Date: 20240620
  Transmission Date: 20240716
  Serious: Yes (Death, Hospitalization)
  Sender: FDA-Public Use
  Company Number: None

PATIENT
  Age: 53 Year
  Sex: Female

DRUGS (1)
  1. AMBRISENTAN [Suspect]
     Active Substance: AMBRISENTAN
     Indication: Pulmonary hypertension
     Dosage: FREQUENCY : DAILY;?
     Route: 048
     Dates: start: 20231205, end: 20240515

REACTIONS (7)
  - Acute respiratory failure [None]
  - Hypertransaminasaemia [None]
  - Therapy interrupted [None]
  - Restlessness [None]
  - Bradycardia [None]
  - Cardiac arrest [None]
  - Sudden death [None]

NARRATIVE: CASE EVENT DATE: 20240620
